FAERS Safety Report 19752796 (Version 1)
Quarter: 2021Q3

REPORT INFORMATION
  Report Type: Spontaneous
  Country: CN (occurrence: CN)
  Receive Date: 20210827
  Receipt Date: 20210827
  Transmission Date: 20211014
  Serious: Yes (Other)
  Sender: FDA-Public Use
  Company Number: CN-009507513-2108CHN005447

PATIENT
  Age: 52 Year
  Sex: Female
  Weight: 57 kg

DRUGS (2)
  1. TIENAM [Suspect]
     Active Substance: CILASTATIN SODIUM\IMIPENEM
     Indication: PNEUMONIA
     Dosage: 1.0 G, BID
     Route: 041
     Dates: start: 20210808, end: 20210811
  2. SODIUM CHLORIDE. [Concomitant]
     Active Substance: SODIUM CHLORIDE
     Dosage: 100 ML, BID; INDICATION: ELECTROLYTE, CALORIE AND WATER BALANCE AGENT
     Route: 041
     Dates: start: 20210808, end: 20210811

REACTIONS (1)
  - Coagulopathy [Not Recovered/Not Resolved]

NARRATIVE: CASE EVENT DATE: 20210810
